FAERS Safety Report 24995941 (Version 1)
Quarter: 2025Q1

REPORT INFORMATION
  Report Type: Spontaneous
  Country: US (occurrence: US)
  Receive Date: 20250221
  Receipt Date: 20250221
  Transmission Date: 20250408
  Serious: Yes (Hospitalization)
  Sender: CATALYST PHARMA
  Company Number: CATA2401938

PATIENT
  Age: 17 Year
  Sex: Male
  Weight: 31.293 kg

DRUGS (2)
  1. AGAMREE [Suspect]
     Active Substance: VAMOROLONE
     Indication: Duchenne muscular dystrophy
     Route: 065
     Dates: start: 20240418, end: 20240607
  2. AGAMREE [Suspect]
     Active Substance: VAMOROLONE
     Dosage: 4.7 ML DAILY
     Dates: start: 20240607

REACTIONS (2)
  - Pneumonia [Recovered/Resolved]
  - Off label use [Unknown]

NARRATIVE: CASE EVENT DATE: 20240607
